FAERS Safety Report 8212192-7 (Version None)
Quarter: 2012Q1

REPORT INFORMATION
  Report Type: 
  Country: None (occurrence: None)
  Receive Date: 20120315
  Receipt Date: 20120306
  Transmission Date: 20120608
  Serious: Yes (Death)
  Sender: FDA-Public Use
  Company Number: DE-ACTELION-A-US2011-53640

PATIENT

DRUGS (3)
  1. VOLIBRIS [Suspect]
  2. VENTAVIS [Suspect]
     Indication: PULMONARY HYPERTENSION
     Dosage: 5 ?G, TID
     Route: 055
     Dates: start: 20090708, end: 20110901
  3. REVATIO [Suspect]

REACTIONS (5)
  - GLOSSODYNIA [None]
  - DEATH [None]
  - TONGUE DISORDER [None]
  - TONGUE COATED [None]
  - DRUG INEFFECTIVE [None]
